FAERS Safety Report 8427256-2 (Version None)
Quarter: 2012Q2

REPORT INFORMATION
  Report Type: 
  Country: None (occurrence: None)
  Receive Date: 20120611
  Receipt Date: 20120605
  Transmission Date: 20120825
  Serious: Yes (Other)
  Sender: FDA-Public Use
  Company Number: US-GLAXOSMITHKLINE-A0972192A

PATIENT
  Age: 68 Year
  Sex: Female

DRUGS (4)
  1. ADVAIR DISKUS 100/50 [Suspect]
     Indication: ASTHMA
     Dosage: 1PUFF TWICE PER DAY
     Route: 055
     Dates: start: 20120301, end: 20120529
  2. VERAPAMIL [Concomitant]
  3. XOPENEX [Concomitant]
  4. LIPITOR [Concomitant]

REACTIONS (2)
  - HEART RATE INCREASED [None]
  - CARDIAC FIBRILLATION [None]
